FAERS Safety Report 9510598 (Version 1)
Quarter: 2013Q3

REPORT INFORMATION
  Report Type: Spontaneous
  Country: GB (occurrence: GB)
  Receive Date: 20130909
  Receipt Date: 20130909
  Transmission Date: 20140515
  Serious: Yes (Life-Threatening)
  Sender: FDA-Public Use
  Company Number: GB-PFIZER INC-2013254053

PATIENT
  Age: 79 Year
  Sex: Female

DRUGS (16)
  1. ONDANSETRON HCL [Suspect]
     Indication: NAUSEA
     Dosage: 4MG/2ML; IN THEATER AND POST-OPERATION
     Route: 040
     Dates: start: 20130812, end: 20130812
  2. ALENDRONIC ACID [Concomitant]
     Dosage: 70 MG, UNK
     Route: 048
  3. LEVOTHYROXINE [Concomitant]
     Dosage: 75 UG, 1X/DAY
     Route: 048
  4. CALCICHEW-D3 [Concomitant]
     Dosage: 2 DF, 1X/DAY
     Route: 048
  5. BENDROFLUMETHIAZIDE [Concomitant]
     Dosage: 2.5 MG, 1X/DAY, IN THE MORNING
     Route: 048
  6. ENALAPRIL [Concomitant]
     Dosage: 20 MG, 1X/DAY
     Route: 048
  7. DOXAZOSIN [Concomitant]
     Dosage: 6 MG, 1X/DAY
     Route: 048
  8. ENOXAPARIN [Concomitant]
     Dosage: UNK
     Route: 058
     Dates: start: 20130812
  9. PARACETAMOL [Concomitant]
     Dosage: UNK
     Dates: start: 20130812
  10. CYCLIZINE [Concomitant]
     Dosage: 50 MG, SINGLE STAT DOSE
     Dates: start: 20130812, end: 20130812
  11. ALFENTANIL [Concomitant]
     Dosage: IN THEATRE
     Dates: start: 20130812, end: 20130812
  12. PROPOFOL [Concomitant]
     Dosage: IN THEATRE
     Dates: start: 20130812, end: 20130812
  13. ROCURONIUM [Concomitant]
     Dosage: IN THEATRE
     Dates: start: 20130812, end: 20130812
  14. FENTANYL [Concomitant]
     Dosage: IN THEATRE
     Dates: start: 20130812, end: 20130812
  15. GLYCOPYRRONIUM [Concomitant]
     Dosage: IN THEATRE
     Dates: start: 20130812, end: 20130812
  16. MORPHINE [Concomitant]
     Dosage: IN THEATRE
     Dates: start: 20130812, end: 20130812

REACTIONS (3)
  - Bradycardia [Recovered/Resolved with Sequelae]
  - Electrocardiogram abnormal [Recovered/Resolved with Sequelae]
  - Electrocardiogram QT prolonged [Recovered/Resolved]
